FAERS Safety Report 5013672-8 (Version None)
Quarter: 2006Q2

REPORT INFORMATION
  Report Type: 
  Country: None (occurrence: None)
  Receive Date: 20060530
  Receipt Date: 20060522
  Transmission Date: 20061013
  Serious: Yes (Other)
  Sender: FDA-Public Use
  Company Number: NL-GLAXOSMITHKLINE-B0425501A

PATIENT
  Age: 48 Year
  Sex: Female

DRUGS (4)
  1. BUPROPION HYDROCHLORIDE [Suspect]
     Dates: start: 20030617, end: 20030622
  2. ASCAL CARDIO [Concomitant]
     Dates: start: 20021223
  3. TRAZOLAN [Concomitant]
     Dosage: 100MG PER DAY
     Dates: start: 19970101
  4. DANTRIUM [Concomitant]
     Dosage: 25MG PER DAY
     Dates: start: 19980101

REACTIONS (7)
  - ASTHENIA [None]
  - DISTURBANCE IN ATTENTION [None]
  - DIZZINESS [None]
  - DRY MOUTH [None]
  - MYALGIA [None]
  - TREMOR [None]
  - VISUAL ACUITY REDUCED [None]
